FAERS Safety Report 5749340-4 (Version None)
Quarter: 2008Q2

REPORT INFORMATION
  Report Type: 
  Country: None (occurrence: None)
  Receive Date: 20080527
  Receipt Date: 20080521
  Transmission Date: 20081010
  Serious: Yes (Other)
  Sender: FDA-Public Use
  Company Number: JP-AVENTIS-200811571JP

PATIENT
  Age: 69 Year
  Sex: Male

DRUGS (2)
  1. AMARYL [Suspect]
     Indication: HYPERGLYCAEMIA
     Route: 048
     Dates: start: 20071228, end: 20080509
  2. GLUCOBAY [Concomitant]

REACTIONS (1)
  - BLOOD POTASSIUM INCREASED [None]
